FAERS Safety Report 4451751-4 (Version None)
Quarter: 2004Q3

REPORT INFORMATION
  Report Type: 
  Country: None (occurrence: None)
  Receive Date: 20040812
  Receipt Date: 20040426
  Transmission Date: 20050211
  Serious: No
  Sender: FDA-Public Use
  Company Number: USA040465826

PATIENT
  Age: 58 Year
  Sex: Male

DRUGS (6)
  1. CIALIS [Suspect]
     Indication: ERECTILE DYSFUNCTION
     Dosage: 10 MG/1 UNKNOWN
     Dates: start: 20040423
  2. CALAN [Concomitant]
  3. DYAZIDE [Concomitant]
  4. ASPIRIN [Concomitant]
  5. ATENOLOL [Concomitant]
  6. MULTIVITAMIN [Concomitant]

REACTIONS (1)
  - BACK PAIN [None]
